FAERS Safety Report 21555191 (Version 2)
Quarter: 2024Q4

REPORT INFORMATION
  Report Type: Spontaneous
  Country: US (occurrence: US)
  Receive Date: 20221104
  Receipt Date: 20241024
  Transmission Date: 20250115
  Serious: Yes (Other)
  Sender: PFIZER
  Company Number: US-PFIZER INC-202201271267

PATIENT
  Age: 66 Year
  Sex: Female
  Weight: 71.67 kg

DRUGS (2)
  1. DEPO-ESTRADIOL [Suspect]
     Active Substance: ESTRADIOL CYPIONATE
     Indication: Hysterectomy
     Dosage: 1 ML, MONTHLY
     Dates: start: 1987, end: 202208
  2. DEPO-ESTRADIOL [Suspect]
     Active Substance: ESTRADIOL CYPIONATE
     Indication: Insomnia

REACTIONS (7)
  - Drug dependence [Unknown]
  - Malaise [Unknown]
  - Hypoaesthesia [Unknown]
  - Feeling abnormal [Unknown]
  - Fibromyalgia [Unknown]
  - Influenza [Unknown]
  - Pain [Unknown]

NARRATIVE: CASE EVENT DATE: 19900101
